FAERS Safety Report 20984548 (Version 1)
Quarter: 2022Q2

REPORT INFORMATION
  Report Type: Spontaneous
  Country: US (occurrence: None)
  Receive Date: 20220621
  Receipt Date: 20220621
  Transmission Date: 20220721
  Serious: No
  Sender: FDA-Public Use
  Company Number: US-ROCHE-2893293

PATIENT
  Sex: Female

DRUGS (18)
  1. CAPECITABINE [Suspect]
     Active Substance: CAPECITABINE
     Indication: Product used for unknown indication
     Route: 065
  2. TUKYSA [Suspect]
     Active Substance: TUCATINIB
     Indication: Breast cancer
     Route: 065
  3. ACETAMINOPHEN [Concomitant]
     Active Substance: ACETAMINOPHEN
  4. ATIVAN [Concomitant]
     Active Substance: LORAZEPAM
  5. CODEINE SULFATE [Concomitant]
     Active Substance: CODEINE SULFATE
  6. DEXAMETHASONE [Concomitant]
     Active Substance: DEXAMETHASONE
  7. DIFLUCAN [Concomitant]
     Active Substance: FLUCONAZOLE
  8. DIPHENHYDRAMINE HYDROCHLORIDE [Concomitant]
     Active Substance: DIPHENHYDRAMINE HYDROCHLORIDE
  9. FAMOTIDINE [Concomitant]
     Active Substance: FAMOTIDINE
  10. LOMOTIL [Concomitant]
     Active Substance: ATROPINE SULFATE\DIPHENOXYLATE HYDROCHLORIDE
  11. MARINOL [Concomitant]
     Active Substance: DRONABINOL
  12. METHYLPREDNISOLONE [Concomitant]
     Active Substance: METHYLPREDNISOLONE
  13. ONDANSETRON [Concomitant]
     Active Substance: ONDANSETRON
  14. PAXIL [Concomitant]
     Active Substance: PAROXETINE HYDROCHLORIDE
  15. POTASSIUM CHLORIDE [Concomitant]
     Active Substance: POTASSIUM CHLORIDE
  16. PROCHLORPERAZINE MALEATE [Concomitant]
     Active Substance: PROCHLORPERAZINE MALEATE
  17. PROTONIX [Concomitant]
     Active Substance: PANTOPRAZOLE SODIUM
  18. SCOPOLAMINE [Concomitant]
     Active Substance: SCOPOLAMINE

REACTIONS (2)
  - White blood cell count decreased [Unknown]
  - Blood creatinine increased [Unknown]
